FAERS Safety Report 14761670 (Version 2)
Quarter: 2018Q2

REPORT INFORMATION
  Report Type: Report from Study
  Country: None (occurrence: US)
  Receive Date: 20180416
  Receipt Date: 20180615
  Transmission Date: 20180711
  Serious: Yes (Other)
  Sender: FDA-Public Use
  Company Number: US-ABBVIE-11P-163-0715155-00

PATIENT
  Sex: Female
  Weight: 68.1 kg

DRUGS (8)
  1. SELENIUM [Concomitant]
     Active Substance: SELENIUM
     Indication: MINERAL SUPPLEMENTATION
  2. HUMIRA [Suspect]
     Active Substance: ADALIMUMAB
     Route: 058
     Dates: start: 20120101
  3. ZINC. [Concomitant]
     Active Substance: ZINC
     Indication: SUPPLEMENTATION THERAPY
  4. IODINE. [Concomitant]
     Active Substance: IODINE
     Indication: THYROID DISORDER
  5. GLUTAMINE [Concomitant]
     Active Substance: GLUTAMINE
     Indication: RHEUMATOID ARTHRITIS
  6. BOSWELLIA [Concomitant]
     Indication: RHEUMATOID ARTHRITIS
  7. AMINO ACID [Concomitant]
     Active Substance: AMINO ACIDS
     Indication: RHEUMATOID ARTHRITIS
  8. HUMIRA [Suspect]
     Active Substance: ADALIMUMAB
     Indication: RHEUMATOID ARTHRITIS
     Route: 058
     Dates: start: 2010

REACTIONS (13)
  - Sciatica [Not Recovered/Not Resolved]
  - Intervertebral disc protrusion [Recovering/Resolving]
  - Nerve compression [Recovering/Resolving]
  - Depression [Not Recovered/Not Resolved]
  - Paraesthesia [Not Recovered/Not Resolved]
  - Oedema peripheral [Not Recovered/Not Resolved]
  - Post procedural complication [Not Recovered/Not Resolved]
  - Alopecia [Not Recovered/Not Resolved]
  - Arthralgia [Not Recovered/Not Resolved]
  - Hypoaesthesia [Not Recovered/Not Resolved]
  - Hair metal test abnormal [Unknown]
  - Hypoaesthesia [Not Recovered/Not Resolved]
  - Upper respiratory tract infection [Not Recovered/Not Resolved]

NARRATIVE: CASE EVENT DATE: 2010
